FAERS Safety Report 8926573 (Version 1)
Quarter: 2012Q4

REPORT INFORMATION
  Report Type: 
  Country: US (occurrence: US)
  Receive Date: 20121127
  Receipt Date: 20121127
  Transmission Date: 20130627
  Serious: No
  Sender: FDA-Public Use
  Company Number: US-B.I. PHARMACEUTICALS,INC./RIDGEFIELD-2012-BI-01113BP

PATIENT
  Age: 55 Year
  Sex: Male

DRUGS (11)
  1. PRADAXA [Suspect]
     Indication: ATRIAL FIBRILLATION
     Dosage: 300 mg
     Route: 048
     Dates: start: 201204
  2. XANAX [Concomitant]
     Indication: ANXIETY
     Dosage: 1 mg
     Route: 048
  3. CARVEDILOL [Concomitant]
     Dosage: 50 mg
     Route: 048
  4. DILTIAZEM [Concomitant]
     Dosage: 120 mg
     Route: 048
  5. METFORMIN [Concomitant]
     Indication: DIABETES MELLITUS
     Dosage: 1000 mg
     Route: 048
  6. GLIMEPIRIDE [Concomitant]
     Indication: DIABETES MELLITUS
     Dosage: 4 mg
     Route: 048
  7. JANUVIA [Concomitant]
     Indication: DIABETES MELLITUS
     Dosage: 100 mg
     Route: 048
  8. SPIRONOLACTONE [Concomitant]
     Dosage: 25 mg
     Route: 048
  9. OXYCONTIN [Concomitant]
     Indication: INTERVERTEBRAL DISC PROTRUSION
     Dosage: 40 mg
     Route: 048
  10. PERCOCET [Concomitant]
     Indication: INTERVERTEBRAL DISC PROTRUSION
     Route: 048
  11. STOOL SOFTENER [Concomitant]
     Route: 048

REACTIONS (3)
  - Cardiac disorder [Unknown]
  - Anxiety [Recovered/Resolved]
  - Panic attack [Recovered/Resolved]
